FAERS Safety Report 10377986 (Version 1)
Quarter: 2014Q3

REPORT INFORMATION
  Report Type: Spontaneous
  Country: IT (occurrence: IT)
  Receive Date: 20140812
  Receipt Date: 20140812
  Transmission Date: 20150326
  Serious: Yes (Other)
  Sender: FDA-Public Use
  Company Number: IT-MYLAN-2014M1001003

PATIENT

DRUGS (1)
  1. AMIODARONE HYDROCHLORIDE. [Suspect]
     Active Substance: AMIODARONE HYDROCHLORIDE
     Dosage: 200 MG DAILY 5 DAYS A WEEK FOR 15 MONTHS
     Route: 065

REACTIONS (5)
  - Optic neuropathy [Recovered/Resolved]
  - Dysstasia [None]
  - Neuropathy peripheral [Not Recovered/Not Resolved]
  - Blood creatine phosphokinase increased [None]
  - Hypothyroidism [None]
